FAERS Safety Report 4441040-6 (Version None)
Quarter: 2004Q3

REPORT INFORMATION
  Report Type: 
  Country: None (occurrence: None)
  Receive Date: 20040830
  Receipt Date: 20040720
  Transmission Date: 20050211
  Serious: Yes (Life-Threatening)
  Sender: FDA-Public Use
  Company Number: 237463

PATIENT
  Age: 76 Year
  Sex: Male
  Weight: 85.3 kg

DRUGS (9)
  1. NOVOLIN 70/30 [Suspect]
     Indication: DIABETES MELLITUS INSULIN-DEPENDENT
     Dosage: SLIDING SCALE BID, SUBCUTANEOUS
     Route: 058
     Dates: start: 20020601
  2. INNOVO (INSULIN DELIVERY DEVICE) [Concomitant]
  3. ZAROXOL (METOLAZONE) [Concomitant]
  4. LASIX [Concomitant]
  5. POTASSIUM (POTASSIUM) [Concomitant]
  6. COREG [Concomitant]
  7. ZOCOR [Concomitant]
  8. COUMADIN [Concomitant]
  9. MICARDIS [Concomitant]

REACTIONS (1)
  - HYPOGLYCAEMIC COMA [None]
